FAERS Safety Report 10048185 (Version 2)
Quarter: 2014Q2

REPORT INFORMATION
  Report Type: Spontaneous
  Country: US (occurrence: US)
  Receive Date: 20140331
  Receipt Date: 20140424
  Transmission Date: 20141212
  Serious: No
  Sender: FDA-Public Use
  Company Number: US-PFIZER INC-2014087725

PATIENT
  Sex: Female

DRUGS (1)
  1. ADVIL [Suspect]
     Indication: ANALGESIC THERAPY
     Dosage: COUPLE, UNK

REACTIONS (3)
  - Oropharyngeal pain [Unknown]
  - Throat irritation [Unknown]
  - Product quality issue [Unknown]
